FAERS Safety Report 9172218 (Version 2)
Quarter: 2013Q3

REPORT INFORMATION
  Report Type: Spontaneous
  Country: AR (occurrence: AR)
  Receive Date: 20130319
  Receipt Date: 20130715
  Transmission Date: 20140515
  Serious: Yes (Other)
  Sender: FDA-Public Use
  Company Number: AR-AMGEN-ARGSP2013019075

PATIENT
  Age: 43 Year
  Sex: Female

DRUGS (1)
  1. ENBREL [Suspect]
     Indication: PSORIATIC ARTHROPATHY
     Dosage: 50 MG, WEEKLY
     Route: 065
     Dates: start: 20111201

REACTIONS (6)
  - Depression suicidal [Recovering/Resolving]
  - Oedema peripheral [Recovered/Resolved]
  - Bone pain [Not Recovered/Not Resolved]
  - Application site pain [Unknown]
  - Application site inflammation [Unknown]
  - Application site discomfort [Recovered/Resolved]
